FAERS Safety Report 18241637 (Version 1)
Quarter: 2020Q3

REPORT INFORMATION
  Report Type: Spontaneous
  Country: US (occurrence: US)
  Receive Date: 20200904
  Receipt Date: 20200904
  Transmission Date: 20201103
  Serious: Yes (Hospitalization)
  Sender: FDA-Public Use
  Company Number: None

PATIENT
  Age: 47 Year
  Sex: Female

DRUGS (29)
  1. ALBUTEROL AER [Concomitant]
     Active Substance: ALBUTEROL
  2. ALOGLIPTIN. [Concomitant]
     Active Substance: ALOGLIPTIN
  3. CEPHALEXIN. [Concomitant]
     Active Substance: CEPHALEXIN
  4. ESOMEPRA MAG [Concomitant]
  5. CHLORHEX GLU [Concomitant]
  6. HUMALOG KWIK [Concomitant]
  7. SPIRIVA [Concomitant]
     Active Substance: TIOTROPIUM BROMIDE MONOHYDRATE
  8. SYNTHROID [Concomitant]
     Active Substance: LEVOTHYROXINE SODIUM
  9. ALBUTEROL NEB [Concomitant]
     Active Substance: ALBUTEROL
  10. MOMETASONE [Concomitant]
     Active Substance: MOMETASONE
  11. NIROFUR MAC [Concomitant]
  12. NUCALA [Suspect]
     Active Substance: MEPOLIZUMAB
     Indication: ASTHMA
     Dosage: ?          OTHER FREQUENCY:Q28D;?
     Route: 058
     Dates: start: 20200808
  13. AZITHROMYCIN ANHYDROUS. [Concomitant]
     Active Substance: AZITHROMYCIN ANHYDROUS
  14. METHYLPRED [Concomitant]
     Active Substance: METHYLPREDNISOLONE
  15. OXYCODONE [Concomitant]
     Active Substance: OXYCODONE
  16. PHENAZOPYRID [Concomitant]
  17. PIMECROLIMUS CRE [Concomitant]
  18. SMZ/TMP DS [Concomitant]
     Active Substance: SULFAMETHOXAZOLE\TRIMETHOPRIM
  19. AMOX/K CLAV [Concomitant]
     Active Substance: AMOXICILLIN\CLAVULANATE POTASSIUM
  20. BANOPHEN [Concomitant]
     Active Substance: DIPHENHYDRAMINE HYDROCHLORIDE
  21. BASAGLAR [Concomitant]
     Active Substance: INSULIN GLARGINE
  22. ERYTHROMYCIN OIN [Concomitant]
  23. FLUCONAZOLE. [Concomitant]
     Active Substance: FLUCONAZOLE
  24. METFORMIN [Concomitant]
     Active Substance: METFORMIN HYDROCHLORIDE
  25. XARELTO [Concomitant]
     Active Substance: RIVAROXABAN
  26. NYSTATIN. [Concomitant]
     Active Substance: NYSTATIN
  27. HYDROMORPHON [Concomitant]
     Active Substance: HYDROMORPHONE
  28. BRYHALI LOT [Concomitant]
  29. EPINEPHRINE. [Concomitant]
     Active Substance: EPINEPHRINE

REACTIONS (1)
  - Asthma [None]

NARRATIVE: CASE EVENT DATE: 202009
